FAERS Safety Report 7901816-7 (Version None)
Quarter: 2011Q4

REPORT INFORMATION
  Report Type: 
  Country: None (occurrence: None)
  Receive Date: 20111108
  Receipt Date: 20111028
  Transmission Date: 20120403
  Serious: Yes (Other)
  Sender: FDA-Public Use
  Company Number: PHHY2011BR96092

PATIENT
  Sex: Female

DRUGS (2)
  1. RASILEZ [Suspect]
     Dosage: 150 MG, DAY
  2. DIOVAN [Suspect]
     Indication: HYPERTENSION
     Dosage: 1 DF, A DAY
     Dates: start: 20110201

REACTIONS (4)
  - SKIN PLAQUE [None]
  - DECREASED APPETITE [None]
  - OEDEMA PERIPHERAL [None]
  - OROPHARYNGEAL PAIN [None]
